FAERS Safety Report 6625927-1 (Version None)
Quarter: 2010Q1

REPORT INFORMATION
  Report Type: 
  Country: None (occurrence: None)
  Receive Date: 20100310
  Receipt Date: 20100304
  Transmission Date: 20100710
  Serious: Yes (Other)
  Sender: FDA-Public Use
  Company Number: US-BAYER-201012740BCC

PATIENT
  Sex: Male

DRUGS (2)
  1. ALEVE [Suspect]
     Indication: DRUG USE FOR UNKNOWN INDICATION
     Route: 048
  2. OXYGEN [Concomitant]
     Route: 065

REACTIONS (2)
  - DYSPNOEA [None]
  - VOMITING [None]
